FAERS Safety Report 7757571-7 (Version None)
Quarter: 2011Q3

REPORT INFORMATION
  Report Type: 
  Country: None (occurrence: None)
  Receive Date: 20110916
  Receipt Date: 20110913
  Transmission Date: 20111222
  Serious: Yes (Death, Hospitalization, Other)
  Sender: FDA-Public Use
  Company Number: PHHY2011GB81150

PATIENT
  Age: 67 Year
  Sex: Male

DRUGS (5)
  1. OXALIPLATIN [Suspect]
     Indication: GASTROINTESTINAL CARCINOMA
     Dosage: 260 MG, EVERY 3 WEEKS
     Route: 042
     Dates: start: 20110519, end: 20110519
  2. ONDANSETRON [Concomitant]
     Dates: start: 20110519
  3. XELODA [Suspect]
     Indication: GASTROINTESTINAL CARCINOMA
     Dosage: 3400 MG, BID
     Route: 048
     Dates: start: 20110519, end: 20110601
  4. IMODIUM [Concomitant]
     Dates: start: 20110519
  5. DOMPERIDONE [Concomitant]
     Dates: start: 20110519

REACTIONS (6)
  - INFECTION [None]
  - VOMITING [None]
  - NAUSEA [None]
  - DEATH [None]
  - DIARRHOEA [None]
  - DEHYDRATION [None]
